FAERS Safety Report 4521740-X (Version None)
Quarter: 2004Q4

REPORT INFORMATION
  Report Type: 
  Country: None (occurrence: None)
  Receive Date: 20041209
  Receipt Date: 20041129
  Transmission Date: 20050328
  Serious: Yes (Hospitalization)
  Sender: FDA-Public Use
  Company Number: FR-BRISTOL-MYERS SQUIBB COMPANY-12784971

PATIENT
  Age: 72 Year
  Sex: Female

DRUGS (5)
  1. ENDOXAN [Suspect]
     Indication: BREAST CANCER
     Route: 042
     Dates: start: 20041008, end: 20041008
  2. FARMORUBICIN [Suspect]
     Indication: BREAST CANCER
     Route: 042
     Dates: start: 20041008, end: 20041008
  3. FLUOROURACIL [Suspect]
     Indication: BREAST CANCER
     Route: 042
     Dates: start: 20041008, end: 20041008
  4. ZOPHREN [Suspect]
     Indication: BREAST CANCER
     Route: 042
  5. SOLUDECADRON [Suspect]
     Indication: BREAST CANCER
     Route: 042

REACTIONS (1)
  - COLITIS ISCHAEMIC [None]
